FAERS Safety Report 15591308 (Version 1)
Quarter: 2018Q4

REPORT INFORMATION
  Report Type: Spontaneous
  Country: US (occurrence: US)
  Receive Date: 20181106
  Receipt Date: 20181106
  Transmission Date: 20190205
  Serious: Yes (Life-Threatening, Disabling, Other)
  Sender: FDA-Public Use
  Company Number: None

PATIENT
  Age: 57 Year
  Sex: Female
  Weight: 81 kg

DRUGS (14)
  1. LANCEST [Concomitant]
  2. CETIRIZINE [Concomitant]
     Active Substance: CETIRIZINE HYDROCHLORIDE
  3. CLOTRIMAZOLE. [Concomitant]
     Active Substance: CLOTRIMAZOLE
  4. IRBESARTAN. [Suspect]
     Active Substance: IRBESARTAN
     Indication: HYPERTENSION
     Dosage: ?          QUANTITY:90 TABLET(S);?
     Route: 048
     Dates: start: 20170601, end: 20181106
  5. EUCERINE EQ [Concomitant]
  6. ASPIRIN. [Concomitant]
     Active Substance: ASPIRIN
  7. DESONIDE. [Concomitant]
     Active Substance: DESONIDE
  8. ATENOLOL. [Concomitant]
     Active Substance: ATENOLOL
  9. CYCLOBENZAPRINE. [Concomitant]
     Active Substance: CYCLOBENZAPRINE
  10. REFRESH PLUS EQ [Concomitant]
  11. DUCOSATE SODIUM [Concomitant]
  12. TIGER BALM EQ [Concomitant]
  13. TYLENOL [Concomitant]
     Active Substance: ACETAMINOPHEN
  14. FREESTYLE LITE [Concomitant]

REACTIONS (2)
  - Blood disorder [None]
  - Neoplasm malignant [None]

NARRATIVE: CASE EVENT DATE: 20170601
